FAERS Safety Report 17644838 (Version 2)
Quarter: 2020Q2

REPORT INFORMATION
  Report Type: Spontaneous
  Country: US (occurrence: US)
  Receive Date: 20200408
  Receipt Date: 20200507
  Transmission Date: 20200713
  Serious: Yes (Hospitalization, Other)
  Sender: FDA-Public Use
  Company Number: US-BRISTOL-MYERS SQUIBB COMPANY-BMS-2020-027104

PATIENT
  Age: 94 Year
  Sex: Female

DRUGS (1)
  1. COUMADIN [Suspect]
     Active Substance: WARFARIN SODIUM
     Indication: ATRIAL FIBRILLATION
     Dosage: 2 MILLIGRAM, QD
     Route: 048
     Dates: start: 2018

REACTIONS (7)
  - Joint dislocation [Recovered/Resolved]
  - Mitral valve prolapse [Recovered/Resolved]
  - International normalised ratio fluctuation [Recovered/Resolved]
  - Haemarthrosis [Recovered/Resolved]
  - Mitral valve incompetence [Recovered/Resolved]
  - Pain [Recovered/Resolved]
  - Fall [Recovered/Resolved]
